FAERS Safety Report 5584227-1 (Version None)
Quarter: 2008Q1

REPORT INFORMATION
  Report Type: 
  Country: None (occurrence: None)
  Receive Date: 20080108
  Receipt Date: 20071227
  Transmission Date: 20080703
  Serious: Yes (Other)
  Sender: FDA-Public Use
  Company Number: DE-WYE-G00533007

PATIENT
  Age: 84 Year
  Sex: Female
  Weight: 55 kg

DRUGS (7)
  1. TREVILOR RETARD [Suspect]
     Indication: DEPRESSION
     Dosage: 75-150MG PER DAY
     Route: 048
     Dates: start: 20030101
  2. TREVILOR RETARD [Suspect]
     Indication: ANXIETY DISORDER
  3. LERCANIDIPINE HYDROCHLORIDE [Concomitant]
     Indication: HYPERTENSION
     Dosage: UNKNOWN
     Route: 048
  4. ACTONEL [Concomitant]
     Indication: OSTEOPOROSIS
     Dosage: UNKNOWN
     Route: 048
  5. MIRTAZAPINE [Suspect]
     Indication: DEPRESSION
     Dosage: 15-30MG
     Route: 048
     Dates: start: 20030101
  6. MIRTAZAPINE [Suspect]
     Indication: ANXIETY DISORDER
  7. EUTHYROX [Concomitant]
     Indication: THYROID DISORDER
     Dosage: UNKNOWN
     Route: 048

REACTIONS (2)
  - OPTIC NERVE DISORDER [None]
  - VISUAL ACUITY REDUCED [None]
